FAERS Safety Report 7338571-8 (Version None)
Quarter: 2011Q1

REPORT INFORMATION
  Report Type: 
  Country: None (occurrence: None)
  Receive Date: 20110308
  Receipt Date: 20110223
  Transmission Date: 20110831
  Serious: Yes (Other)
  Sender: FDA-Public Use
  Company Number: GB-ELI_LILLY_AND_COMPANY-GB201102006995

PATIENT
  Sex: Female

DRUGS (2)
  1. ZYPREXA [Suspect]
     Dosage: 10 MG, UNK
     Dates: start: 20100601
  2. ZYPREXA [Suspect]
     Dosage: 2.5 MG, UNK

REACTIONS (3)
  - RIGHT ATRIAL DILATATION [None]
  - CHEST PAIN [None]
  - RESPIRATORY DISORDER [None]
